FAERS Safety Report 9632422 (Version 1)
Quarter: 2013Q4

REPORT INFORMATION
  Report Type: Spontaneous
  Country: US (occurrence: None)
  Receive Date: 20131018
  Receipt Date: 20131018
  Transmission Date: 20140711
  Serious: No
  Sender: FDA-Public Use
  Company Number: None

PATIENT
  Age: 49 Year
  Sex: Female

DRUGS (1)
  1. AUBAGIO [Suspect]
     Indication: MULTIPLE SCLEROSIS
     Dosage: 1   ONCE DAILY  TAKEN BY MOUTH
     Route: 048
     Dates: start: 20130826, end: 20130926

REACTIONS (3)
  - Dyspnoea [None]
  - Burning sensation [None]
  - Pain in extremity [None]
